FAERS Safety Report 8366312-4 (Version None)
Quarter: 2012Q2

REPORT INFORMATION
  Report Type: 
  Country: None (occurrence: None)
  Receive Date: 20120517
  Receipt Date: 20120514
  Transmission Date: 20120825
  Serious: Yes (Hospitalization)
  Sender: FDA-Public Use
  Company Number: PHHY2011TR68926

PATIENT
  Sex: Male
  Weight: 36 kg

DRUGS (4)
  1. BACTRIM [Concomitant]
     Indication: PROPHYLAXIS
  2. EXJADE [Suspect]
     Dosage: 28 MG/KG, UNK
     Dates: start: 20110501
  3. CYCLOSPORINE [Concomitant]
     Dosage: 6 MG/KG, UNK
  4. EXJADE [Suspect]
     Indication: APLASTIC ANAEMIA
     Dosage: 500 MG, UNK
     Dates: start: 20101101

REACTIONS (3)
  - RENAL FAILURE [None]
  - HYPERTENSION [None]
  - SERUM FERRITIN INCREASED [None]
